FAERS Safety Report 15352973 (Version 3)
Quarter: 2018Q4

REPORT INFORMATION
  Report Type: Report from Study
  Country: US (occurrence: US)
  Receive Date: 20180905
  Receipt Date: 20181106
  Transmission Date: 20190204
  Serious: Yes (Hospitalization, Other)
  Sender: FDA-Public Use
  Company Number: US-GILEAD-2018-0361121

PATIENT
  Age: 61 Year
  Sex: Female

DRUGS (16)
  1. ONDANSETRON [Concomitant]
     Active Substance: ONDANSETRON
  2. ATROVENT [Concomitant]
     Active Substance: IPRATROPIUM BROMIDE
  3. LEVOTHYROXINE. [Concomitant]
     Active Substance: LEVOTHYROXINE
  4. METOPROLOL. [Concomitant]
     Active Substance: METOPROLOL
  5. ATORVASTATIN [Concomitant]
     Active Substance: ATORVASTATIN
  6. DILANTIN [Concomitant]
     Active Substance: PHENYTOIN
  7. FERROUS SULFATE. [Concomitant]
     Active Substance: FERROUS SULFATE
  8. SILDENAFIL. [Concomitant]
     Active Substance: SILDENAFIL
  9. OMEPRAZOLE. [Concomitant]
     Active Substance: OMEPRAZOLE
  10. NORCO [Concomitant]
     Active Substance: ACETAMINOPHEN\HYDROCODONE BITARTRATE
  11. LASIX [Concomitant]
     Active Substance: FUROSEMIDE
  12. URSODIOL. [Concomitant]
     Active Substance: URSODIOL
  13. AMBRISENTAN [Suspect]
     Active Substance: AMBRISENTAN
     Indication: PULMONARY ARTERIAL HYPERTENSION
     Dosage: 10 MG, QD
     Route: 048
     Dates: start: 201407
  14. K-TAB [Concomitant]
     Active Substance: POTASSIUM CHLORIDE
  15. LOSARTAN. [Concomitant]
     Active Substance: LOSARTAN
  16. CALCIUM WITH VITAMIN D             /00944201/ [Concomitant]
     Active Substance: CALCIUM CARBONATE\CHOLECALCIFEROL

REACTIONS (6)
  - Seizure [Unknown]
  - Joint injury [Unknown]
  - Hepatic encephalopathy [Unknown]
  - Hepatic encephalopathy [Recovering/Resolving]
  - Epilepsy [Unknown]
  - Fall [Unknown]

NARRATIVE: CASE EVENT DATE: 201808
